FAERS Safety Report 7985882-9 (Version None)
Quarter: 2011Q4

REPORT INFORMATION
  Report Type: 
  Country: None (occurrence: None)
  Receive Date: 20111216
  Receipt Date: 20111206
  Transmission Date: 20120403
  Serious: Yes (Death, Hospitalization)
  Sender: FDA-Public Use
  Company Number: US-BAYER-2011-085996

PATIENT
  Age: 39 Year
  Sex: Female
  Weight: 81.633 kg

DRUGS (2)
  1. SERTRALINE HYDROCHLORIDE [Concomitant]
     Dosage: UNK
     Dates: start: 20090414
  2. YASMIN [Suspect]
     Dosage: UNK
     Dates: start: 20030401, end: 20040101

REACTIONS (2)
  - CORONARY ARTERY OCCLUSION [None]
  - CHOLECYSTECTOMY [None]
